FAERS Safety Report 20935444 (Version 1)
Quarter: 2022Q2

REPORT INFORMATION
  Report Type: Spontaneous
  Country: MQ (occurrence: MQ)
  Receive Date: 20220609
  Receipt Date: 20220609
  Transmission Date: 20220721
  Serious: Yes (Other)
  Sender: FDA-Public Use
  Company Number: MQ-SUN PHARMACEUTICAL INDUSTRIES LTD-2014R1-85386

PATIENT
  Age: 68 Year
  Sex: Male

DRUGS (5)
  1. DOXORUBICIN [Suspect]
     Active Substance: DOXORUBICIN
     Indication: B-cell lymphoma
     Dosage: 1 ST CYCLE
     Route: 065
     Dates: start: 201102
  2. PREDNISONE [Suspect]
     Active Substance: PREDNISONE
     Indication: B-cell lymphoma
     Dosage: 1ST CYCLE
     Route: 065
     Dates: start: 201102
  3. CYCLOPHOSPHAMIDE [Suspect]
     Active Substance: CYCLOPHOSPHAMIDE
     Indication: B-cell lymphoma
     Dosage: 1ST CYCLE
     Route: 065
     Dates: start: 201102
  4. ONCOVIN [Suspect]
     Active Substance: VINCRISTINE SULFATE
     Indication: B-cell lymphoma
     Dosage: 1ST CYCLE
     Route: 065
     Dates: start: 201102
  5. RITUXIMAB [Suspect]
     Active Substance: RITUXIMAB
     Indication: B-cell lymphoma
     Dosage: 1ST CYCLE
     Route: 065
     Dates: start: 201102

REACTIONS (3)
  - Fungal infection [Recovering/Resolving]
  - Skin necrosis [Recovering/Resolving]
  - Febrile neutropenia [Unknown]
